FAERS Safety Report 19806398 (Version 3)
Quarter: 2022Q1

REPORT INFORMATION
  Report Type: Spontaneous
  Country: US (occurrence: US)
  Receive Date: 20210908
  Receipt Date: 20220114
  Transmission Date: 20220423
  Serious: Yes (Other)
  Sender: FDA-Public Use
  Company Number: US-GILEAD-2021-0547083

PATIENT
  Age: 37 Year
  Sex: Female

DRUGS (2)
  1. TRUVADA [Suspect]
     Active Substance: EMTRICITABINE\TENOFOVIR DISOPROXIL FUMARATE
     Indication: HIV infection
     Dosage: UNK
     Route: 048
     Dates: start: 20200701, end: 20210331
  2. DESCOVY [Concomitant]
     Active Substance: EMTRICITABINE\TENOFOVIR ALAFENAMIDE FUMARATE

REACTIONS (3)
  - Osteoporosis [Not Recovered/Not Resolved]
  - Bone density decreased [Unknown]
  - Tooth loss [Recovered/Resolved]

NARRATIVE: CASE EVENT DATE: 20210203
